FAERS Safety Report 9204016 (Version 1)
Quarter: 2013Q2

REPORT INFORMATION
  Report Type: Spontaneous
  Country: JP (occurrence: JP)
  Receive Date: 20130402
  Receipt Date: 20130402
  Transmission Date: 20140414
  Serious: Yes (Other)
  Sender: FDA-Public Use
  Company Number: PHHY2013JP015976

PATIENT
  Age: 6 Year
  Sex: Female

DRUGS (3)
  1. NEORAL [Suspect]
     Indication: STEM CELL TRANSPLANT
     Dosage: UNK
     Dates: start: 200402, end: 200402
  2. TACROLIMUS [Suspect]
     Indication: CORD BLOOD TRANSPLANT THERAPY
  3. CHEMOTHERAPEUTICS [Concomitant]

REACTIONS (6)
  - Posterior reversible encephalopathy syndrome [Recovered/Resolved]
  - Loss of consciousness [Unknown]
  - Aphasia [Unknown]
  - Convulsion [Recovered/Resolved]
  - Complex partial seizures [Recovered/Resolved]
  - Hypertension [Recovered/Resolved]
